FAERS Safety Report 14974522 (Version 7)
Quarter: 2020Q3

REPORT INFORMATION
  Report Type: Spontaneous
  Country: CA (occurrence: CA)
  Receive Date: 20180605
  Receipt Date: 20200925
  Transmission Date: 20201102
  Serious: Yes (Other)
  Sender: FDA-Public Use
  Company Number: CA-CELLTRION INC.-2018CA019853

PATIENT

DRUGS (19)
  1. INFLECTRA [Suspect]
     Active Substance: INFLIXIMAB-DYYB
     Dosage: 300 MG, EVERY 7 WEEKS
     Route: 042
     Dates: start: 20180516, end: 20180516
  2. INFLECTRA [Suspect]
     Active Substance: INFLIXIMAB-DYYB
     Dosage: 300 MG, 0,2,6 WEEKS THEN EVERY 7 WEEKS
     Route: 042
     Dates: start: 20191218
  3. INFLECTRA [Suspect]
     Active Substance: INFLIXIMAB-DYYB
     Dosage: 300 MG, 0,2,6 WEEKS THEN EVERY 7 WEEKS
     Route: 042
     Dates: start: 20200917
  4. INFLECTRA [Suspect]
     Active Substance: INFLIXIMAB-DYYB
     Dosage: 300 MG, 0,2,6 WEEKS THEN EVERY 7 WEEKS
     Route: 042
     Dates: start: 20181026, end: 2018
  5. CIMZIA [Concomitant]
     Active Substance: CERTOLIZUMAB PEGOL
     Dosage: UNK
  6. HYDROXYCHLOROQUINE [Concomitant]
     Active Substance: HYDROXYCHLOROQUINE
     Dosage: 400/200MG ALTERNATING DAYS
  7. INFLECTRA [Suspect]
     Active Substance: INFLIXIMAB-DYYB
     Dosage: 300 MG, 0,2,6 WEEKS THEN EVERY 7 WEEKS
     Route: 042
     Dates: start: 20181026
  8. INFLECTRA [Suspect]
     Active Substance: INFLIXIMAB-DYYB
     Dosage: 300 MG, 0,2,6 WEEKS THEN EVERY 7 WEEKS
     Route: 042
     Dates: start: 20200729
  9. HYDROXYCHLOROQUINE [Concomitant]
     Active Substance: HYDROXYCHLOROQUINE
     Dosage: 200 MG, 1X/DAY
     Route: 048
  10. INFLECTRA [Suspect]
     Active Substance: INFLIXIMAB-DYYB
     Dosage: UNK
     Route: 042
     Dates: start: 20180601, end: 20180601
  11. INFLECTRA [Suspect]
     Active Substance: INFLIXIMAB-DYYB
     Dosage: 300 MG, EVERY 7 WEEKS
     Route: 042
     Dates: start: 20180328, end: 20180328
  12. INFLECTRA [Suspect]
     Active Substance: INFLIXIMAB-DYYB
     Dosage: 300 MG, 0,2,6 WEEKS THEN EVERY 7 WEEKS
     Route: 042
     Dates: start: 20180727, end: 20180727
  13. INFLECTRA [Suspect]
     Active Substance: INFLIXIMAB-DYYB
     Dosage: 300 MG, 0,2,6 WEEKS THEN EVERY 7 WEEKS
     Route: 042
     Dates: start: 20190107
  14. INFLECTRA [Suspect]
     Active Substance: INFLIXIMAB-DYYB
     Indication: RHEUMATOID ARTHRITIS
     Dosage: 300 MG, EVERY 7 WEEKS
     Route: 042
     Dates: start: 20160609
  15. INFLECTRA [Suspect]
     Active Substance: INFLIXIMAB-DYYB
     Dosage: 300 MG, 0,2,6 WEEKS THEN EVERY 7 WEEKS
     Route: 042
     Dates: start: 20180907
  16. INFLECTRA [Suspect]
     Active Substance: INFLIXIMAB-DYYB
     Dosage: 300 MG, 0,2,6 WEEKS THEN EVERY 7 WEEKS
     Route: 042
     Dates: start: 20200227
  17. LEFLUNOMIDE. [Concomitant]
     Active Substance: LEFLUNOMIDE
     Dosage: 20 MG, 1X/DAY
     Route: 048
  18. PLAQUENIL /00072602/ [Concomitant]
     Active Substance: HYDROXYCHLOROQUINE DIPHOSPHATE
     Dosage: UNK
  19. INFLECTRA [Suspect]
     Active Substance: INFLIXIMAB-DYYB
     Dosage: 300 MG, 0,2,6 WEEKS THEN EVERY 7 WEEKS
     Route: 042
     Dates: start: 20200612

REACTIONS (14)
  - Drug ineffective [Unknown]
  - Malaise [Unknown]
  - Product use issue [Unknown]
  - Off label use [Unknown]
  - Weight increased [Unknown]
  - Intentional product use issue [Unknown]
  - Blood pressure decreased [Unknown]
  - Pneumonia [Recovering/Resolving]
  - Drug level below therapeutic [Unknown]
  - Anal fistula [Unknown]
  - Urticaria [Recovered/Resolved]
  - Nasopharyngitis [Not Recovered/Not Resolved]
  - Heart rate irregular [Unknown]
  - Inappropriate schedule of product administration [Unknown]

NARRATIVE: CASE EVENT DATE: 20160609
